FAERS Safety Report 12138815 (Version 1)
Quarter: 2016Q1

REPORT INFORMATION
  Report Type: Spontaneous
  Country: DE (occurrence: DE)
  Receive Date: 20160302
  Receipt Date: 20160302
  Transmission Date: 20160526
  Serious: Yes (Hospitalization)
  Sender: FDA-Public Use
  Company Number: DE-TEVA-637552GER

PATIENT
  Age: 55 Year
  Sex: Female
  Weight: 65 kg

DRUGS (3)
  1. GABAPENTIN. [Suspect]
     Active Substance: GABAPENTIN
     Indication: POST HERPETIC NEURALGIA
     Dosage: 900 MILLIGRAM DAILY;
     Route: 048
     Dates: start: 20151226, end: 20160105
  2. TRAMADOL TROPFEN [Concomitant]
     Active Substance: TRAMADOL
     Indication: POST HERPETIC NEURALGIA
     Dosage: 80 GTT DAILY;
     Route: 048
     Dates: start: 20151226, end: 20160104
  3. NOVAMINSULFON TROPFEN [Concomitant]
     Indication: POST HERPETIC NEURALGIA
     Dosage: 120 GTT DAILY;
     Route: 048
     Dates: start: 20160102

REACTIONS (6)
  - Dyspnoea [Recovering/Resolving]
  - Dysphagia [Recovering/Resolving]
  - Hyperventilation [Recovering/Resolving]
  - Anxiety [Recovering/Resolving]
  - Tetany [Recovering/Resolving]
  - Paraesthesia oral [Recovering/Resolving]

NARRATIVE: CASE EVENT DATE: 20151227
